FAERS Safety Report 15577438 (Version 2)
Quarter: 2019Q1

REPORT INFORMATION
  Report Type: Report from Study
  Country: IT (occurrence: IT)
  Receive Date: 20181102
  Receipt Date: 20190117
  Transmission Date: 20190417
  Serious: Yes (Hospitalization)
  Sender: FDA-Public Use
  Company Number: IT-TEVA-2018-IT-970990

PATIENT
  Age: 78 Year
  Sex: Female

DRUGS (5)
  1. METOTRESSATO TEVA 25 MG/ML SOLUZIONE INIETTABILE [Suspect]
     Active Substance: METHOTREXATE SODIUM
     Indication: NON-HODGKIN^S LYMPHOMA
     Route: 037
     Dates: start: 20180807, end: 20180807
  2. ADRIBLASTINA 50 MG/25 ML SOLUZIONE INIETTABILE PER USO ENDOVENOSO [Suspect]
     Active Substance: DOXORUBICIN HYDROCHLORIDE
     Indication: NON-HODGKIN^S LYMPHOMA
     Route: 058
     Dates: start: 20180807, end: 20180807
  3. VINCRISTINA TEVA ITALIA 1 MG/ML SOLUZIONE INIETTABILE [Suspect]
     Active Substance: VINCRISTINE SULFATE
     Indication: NON-HODGKIN^S LYMPHOMA
     Route: 058
     Dates: start: 20180807, end: 20180807
  4. ENDOXAN BAXTER 1 G POLVERE PER SOLUZIONE INIETTABILE [Suspect]
     Active Substance: CYCLOPHOSPHAMIDE
     Indication: NON-HODGKIN^S LYMPHOMA
     Route: 058
     Dates: start: 20180807, end: 20180807
  5. MABTHERA 1400 MG SOLUTION FOR SUBCUTANEOUS INJECTION [Concomitant]
     Indication: NON-HODGKIN^S LYMPHOMA
     Route: 058
     Dates: start: 20180807, end: 20180807

REACTIONS (2)
  - Arthralgia [Recovering/Resolving]
  - Febrile neutropenia [Recovering/Resolving]

NARRATIVE: CASE EVENT DATE: 20180816
